FAERS Safety Report 9097402 (Version 2)
Quarter: 2013Q1

REPORT INFORMATION
  Report Type: Spontaneous
  Country: IN (occurrence: IN)
  Receive Date: 20130212
  Receipt Date: 20130222
  Transmission Date: 20140127
  Serious: Yes (Other)
  Sender: FDA-Public Use
  Company Number: ID-BRISTOL-MYERS SQUIBB COMPANY-17365370

PATIENT
  Age: 41 Year
  Sex: Male

DRUGS (12)
  1. METFORMIN HCL [Suspect]
     Indication: DIABETES MELLITUS
     Dosage: DOSE:2000MG FROM 03JUL08 TO 23SEP09?DOSE: UNKNOWN FROM 24SEP09-ONG
     Route: 048
     Dates: start: 20090924
  2. PARACETAMOL [Suspect]
     Dosage: ONG
     Route: 048
     Dates: start: 20080703
  3. ATORVASTATIN [Suspect]
     Indication: CARDIOVASCULAR EVENT PROPHYLAXIS
     Dosage: ONG
     Route: 048
     Dates: start: 20080703
  4. RABEPRAZOLE [Concomitant]
     Dosage: DOSE:40MG FROM 19DEC09 TO 22JAN10?20MG ON 10FEB10
     Route: 048
     Dates: start: 20091219
  5. ASCORBIC ACID [Concomitant]
     Route: 048
     Dates: start: 20080703
  6. CAFFEINE [Concomitant]
     Route: 048
     Dates: start: 20080703
  7. PHENYLEPHRINE HCL [Concomitant]
     Route: 048
     Dates: start: 20080703
  8. RANITIDINE [Concomitant]
     Route: 048
     Dates: start: 1998
  9. SODIUM CHLORIDE [Concomitant]
     Dosage: DOSE: AS REQURIED SINCE 1995?1995 TO UNK,27JAN2010 TO 09FEB2010
     Dates: start: 1995, end: 20100209
  10. BAYER ASPIRIN [Concomitant]
     Indication: CARDIOVASCULAR EVENT PROPHYLAXIS
     Route: 048
     Dates: start: 20080703
  11. CEFADROXIL [Concomitant]
  12. AMOXICILLIN+POTASS CLAVULANATE [Concomitant]

REACTIONS (1)
  - Drug-induced liver injury [Recovered/Resolved]
